FAERS Safety Report 7545328-1 (Version None)
Quarter: 2011Q2

REPORT INFORMATION
  Report Type: 
  Country: None (occurrence: None)
  Receive Date: 20110614
  Receipt Date: 20110602
  Transmission Date: 20111010
  Serious: Yes (Other)
  Sender: FDA-Public Use
  Company Number: CA-ELI_LILLY_AND_COMPANY-CA201106000890

PATIENT
  Age: 17 Year
  Sex: Male

DRUGS (1)
  1. PROZAC [Suspect]
     Indication: DEPRESSION
     Dosage: UNK, UNKNOWN
     Route: 065
     Dates: start: 20090601

REACTIONS (6)
  - AGITATION [None]
  - HOMICIDE [None]
  - CONDITION AGGRAVATED [None]
  - FEELING ABNORMAL [None]
  - SUICIDE ATTEMPT [None]
  - MANIA [None]
